FAERS Safety Report 5876497-7 (Version None)
Quarter: 2008Q3

REPORT INFORMATION
  Report Type: 
  Country: None (occurrence: None)
  Receive Date: 20080910
  Receipt Date: 20080905
  Transmission Date: 20090109
  Serious: Yes (Other)
  Sender: FDA-Public Use
  Company Number: A0746854A

PATIENT
  Age: 56 Year
  Sex: Female

DRUGS (19)
  1. LAMICTAL [Suspect]
     Dosage: 150MG TWICE PER DAY
     Route: 048
     Dates: start: 20060101
  2. BYETTA [Concomitant]
  3. METHADONE HCL [Concomitant]
  4. NEURONTIN [Concomitant]
  5. AVALIDE [Concomitant]
  6. PROTONIX [Concomitant]
  7. ASPIRIN [Concomitant]
  8. TRICOR [Concomitant]
  9. VYTORIN [Concomitant]
  10. RESTORIL [Concomitant]
  11. SYNTHROID [Concomitant]
  12. CIPROFLOXACIN [Concomitant]
  13. BIAXIN [Concomitant]
  14. ETHAMBUTOL HCL [Concomitant]
  15. CALCIUM [Concomitant]
  16. FISH OIL [Concomitant]
  17. SPIRIVA [Concomitant]
  18. MULTI-VITAMIN [Concomitant]
  19. QVAR 40 [Concomitant]

REACTIONS (8)
  - BACK INJURY [None]
  - FALL [None]
  - GRAND MAL CONVULSION [None]
  - INTERVERTEBRAL DISC PROTRUSION [None]
  - LIMB INJURY [None]
  - MUSCLE STRAIN [None]
  - NECK INJURY [None]
  - PAIN IN EXTREMITY [None]
